FAERS Safety Report 9285336 (Version 1)
Quarter: 2013Q2

REPORT INFORMATION
  Report Type: Spontaneous
  Country: US (occurrence: US)
  Receive Date: 20130513
  Receipt Date: 20130513
  Transmission Date: 20140414
  Serious: Yes (Other)
  Sender: FDA-Public Use
  Company Number: US-BRISTOL-MYERS SQUIBB COMPANY-18876540

PATIENT
  Sex: 0

DRUGS (1)
  1. ONGLYZA TABS [Suspect]

REACTIONS (1)
  - Pancreatic carcinoma [Unknown]
